FAERS Safety Report 11907971 (Version 1)
Quarter: 2016Q1

REPORT INFORMATION
  Report Type: Spontaneous
  Country: US (occurrence: US)
  Receive Date: 20160111
  Receipt Date: 20160111
  Transmission Date: 20160526
  Serious: Yes (Hospitalization, Other)
  Sender: FDA-Public Use
  Company Number: US-ABBVIE-16P-163-1534715-00

PATIENT
  Age: 65 Year
  Sex: Male

DRUGS (3)
  1. VIEKIRA PAK [Suspect]
     Active Substance: DASABUVIR\OMBITASVIR\PARITAPREVIR\RITONAVIR
     Indication: CHRONIC HEPATITIS C
     Route: 048
     Dates: start: 201509, end: 20160107
  2. MODERIBA [Suspect]
     Active Substance: RIBAVIRIN
     Dosage: DECREASED
     Route: 048
     Dates: end: 20160107
  3. MODERIBA [Suspect]
     Active Substance: RIBAVIRIN
     Indication: CHRONIC HEPATITIS C
     Route: 048
     Dates: start: 201509

REACTIONS (7)
  - Dizziness [Unknown]
  - Faeces discoloured [Unknown]
  - Nausea [Unknown]
  - Vomiting [Unknown]
  - Asthenia [Unknown]
  - Blood bilirubin increased [Unknown]
  - Dehydration [Unknown]

NARRATIVE: CASE EVENT DATE: 201512
